FAERS Safety Report 7455915-7 (Version None)
Quarter: 2011Q2

REPORT INFORMATION
  Report Type: 
  Country: None (occurrence: None)
  Receive Date: 20110503
  Receipt Date: 20110422
  Transmission Date: 20111010
  Serious: Yes (Other)
  Sender: FDA-Public Use
  Company Number: BE-JNJFOC-20110403391

PATIENT
  Sex: Female
  Weight: 50 kg

DRUGS (9)
  1. SEROQUEL [Concomitant]
     Indication: PRODUCT USED FOR UNKNOWN INDICATION
     Route: 065
  2. CIPRALEX [Concomitant]
     Indication: PRODUCT USED FOR UNKNOWN INDICATION
     Route: 065
  3. INVEGA [Suspect]
     Route: 048
  4. REQUIP [Concomitant]
     Indication: PRODUCT USED FOR UNKNOWN INDICATION
     Route: 065
  5. INVEGA [Suspect]
     Route: 048
  6. INVEGA [Suspect]
     Dosage: 3 UNITS NOT SPECIFIED
     Route: 048
  7. INVEGA [Suspect]
     Indication: MAJOR DEPRESSION
     Route: 048
  8. INVEGA [Suspect]
     Indication: PARKINSON'S DISEASE
     Route: 048
  9. INVEGA [Suspect]
     Dosage: 3 UNITS NOT SPECIFIED
     Route: 048

REACTIONS (5)
  - ASTHENIA [None]
  - SOMNOLENCE [None]
  - HALLUCINATION [None]
  - APATHY [None]
  - OFF LABEL USE [None]
